FAERS Safety Report 6646309-2 (Version None)
Quarter: 2010Q1

REPORT INFORMATION
  Report Type: 
  Country: None (occurrence: None)
  Receive Date: 20100323
  Receipt Date: 20100311
  Transmission Date: 20100710
  Serious: Yes (Hospitalization)
  Sender: FDA-Public Use
  Company Number: JP-BAYER-201010288BYL

PATIENT
  Age: 72 Year
  Sex: Male
  Weight: 64 kg

DRUGS (6)
  1. NEXAVAR [Suspect]
     Indication: HEPATIC NEOPLASM MALIGNANT
     Dosage: TOTAL DAILY DOSE: 800 MG  UNIT DOSE: 200 MG
     Route: 048
     Dates: start: 20100115, end: 20100117
  2. LIVACT [Concomitant]
     Dosage: UNIT DOSE: 4.15 G
     Route: 048
     Dates: start: 20091117
  3. FAMOTIDINE [Concomitant]
     Dosage: UNIT DOSE: 20 MG
     Route: 048
     Dates: start: 20091117
  4. ALDACTONE [Concomitant]
     Dosage: UNIT DOSE: 25 MG
     Route: 048
     Dates: start: 20091117
  5. LASIX [Concomitant]
     Dosage: UNIT DOSE: 40 MG
     Route: 048
     Dates: start: 20091117
  6. URSO 250 [Concomitant]
     Dosage: UNIT DOSE: 100 MG
     Route: 048
     Dates: start: 20091117

REACTIONS (1)
  - HEPATIC ENCEPHALOPATHY [None]
